FAERS Safety Report 7640713-1 (Version None)
Quarter: 2011Q3

REPORT INFORMATION
  Report Type: 
  Country: None (occurrence: None)
  Receive Date: 20110728
  Receipt Date: 20110721
  Transmission Date: 20111222
  Serious: Yes (Hospitalization, Other)
  Sender: FDA-Public Use
  Company Number: AT-AMGEN-AUTSP2011010289

PATIENT
  Age: 82 Year
  Sex: Female
  Weight: 96 kg

DRUGS (9)
  1. DIBONDRIN [Concomitant]
     Dosage: UNK
     Route: 042
     Dates: start: 20110103, end: 20110118
  2. PANTOPRAZOL                        /01263202/ [Concomitant]
  3. VECTIBIX [Suspect]
     Indication: COLORECTAL CANCER METASTATIC
     Dosage: 6 MG/KG, Q2WK
     Route: 042
     Dates: start: 20110103, end: 20110118
  4. TAXOTERE [Concomitant]
     Dosage: UNK
  5. ZYRTEC [Concomitant]
     Dosage: UNK UNK, BID
     Route: 048
  6. REVATIO [Concomitant]
  7. SINTROM [Concomitant]
  8. TRACLEER [Concomitant]
  9. SPIRONOLACTONE [Concomitant]

REACTIONS (12)
  - CONJUNCTIVITIS [None]
  - EXFOLIATIVE RASH [None]
  - MALAISE [None]
  - BLISTER [None]
  - PULMONARY ARTERIAL HYPERTENSION [None]
  - SUPERINFECTION [None]
  - PRURITUS [None]
  - IMPAIRED HEALING [None]
  - SKIN OEDEMA [None]
  - MUCOSAL INFLAMMATION [None]
  - CARDIAC FAILURE [None]
  - EYE INFLAMMATION [None]
